FAERS Safety Report 10009110 (Version 2)
Quarter: 2014Q1

REPORT INFORMATION
  Report Type: Spontaneous
  Country: US (occurrence: US)
  Receive Date: 20140313
  Receipt Date: 20140313
  Transmission Date: 20141002
  Serious: No
  Sender: FDA-Public Use
  Company Number: US-GILEAD-2013-0072653

PATIENT
  Sex: Female

DRUGS (4)
  1. LETAIRIS [Suspect]
     Indication: PULMONARY ARTERIAL HYPERTENSION
     Dosage: 5 MG, QD
     Route: 048
     Dates: start: 20120411
  2. LETAIRIS [Suspect]
     Indication: OBESITY
  3. TYVASO [Concomitant]
  4. ADCIRCA [Concomitant]

REACTIONS (3)
  - Middle insomnia [Unknown]
  - Dizziness postural [Unknown]
  - Headache [Unknown]
